FAERS Safety Report 5493601-3 (Version None)
Quarter: 2007Q4

REPORT INFORMATION
  Report Type: 
  Country: None (occurrence: None)
  Receive Date: 20071023
  Receipt Date: 20071009
  Transmission Date: 20080405
  Serious: Yes (Death)
  Sender: FDA-Public Use
  Company Number: GB-RANBAXY-2007RR-05235

PATIENT

DRUGS (2)
  1. SERTRALINE HYDROCHLORIDE [Suspect]
     Route: 065
  2. DIAZEPAM [Suspect]
     Route: 065

REACTIONS (4)
  - COMPLETED SUICIDE [None]
  - DROWNING [None]
  - DRUG LEVEL BELOW THERAPEUTIC [None]
  - INTENTIONAL OVERDOSE [None]
